FAERS Safety Report 11130137 (Version 4)
Quarter: 2015Q4

REPORT INFORMATION
  Report Type: Spontaneous
  Country: CA (occurrence: CA)
  Receive Date: 20150521
  Receipt Date: 20151112
  Transmission Date: 20160304
  Serious: Yes (Other)
  Sender: FDA-Public Use
  Company Number: CA-ALLERGAN-1509438US

PATIENT
  Age: 53 Year
  Sex: Female

DRUGS (9)
  1. JUVEDERM [Suspect]
     Active Substance: HYALURONIC ACID
     Indication: SKIN WRINKLING
     Dosage: 0.6 ML, SINGLE
     Dates: start: 20130326, end: 20130326
  2. BOTOX COSMETIC [Suspect]
     Active Substance: ONABOTULINUMTOXINA
     Indication: SKIN WRINKLING
     Dosage: 12 UNITS, SINGLE
     Route: 030
     Dates: start: 20130326, end: 20130326
  3. BOTOX COSMETIC [Suspect]
     Active Substance: ONABOTULINUMTOXINA
     Indication: SKIN WRINKLING
     Dosage: 3 UNITS, SINGLE, PER SIDE
     Route: 030
     Dates: start: 20130326, end: 20130326
  4. BOTOX COSMETIC [Suspect]
     Active Substance: ONABOTULINUMTOXINA
     Indication: SKIN WRINKLING
     Dosage: 4 UNITS, SINGLE
     Route: 030
     Dates: start: 20130326, end: 20130326
  5. BOTOX COSMETIC [Suspect]
     Active Substance: ONABOTULINUMTOXINA
     Dosage: 66 UNITS, SINGLE
     Route: 030
     Dates: start: 20130115, end: 20130115
  6. BOTOX COSMETIC [Suspect]
     Active Substance: ONABOTULINUMTOXINA
     Indication: SKIN WRINKLING
     Dosage: 20 UNITS, SINGLE
     Route: 030
     Dates: start: 20130326, end: 20130326
  7. BOTOX COSMETIC [Suspect]
     Active Substance: ONABOTULINUMTOXINA
     Indication: SKIN WRINKLING
     Dosage: 12 UNITS, SINGLE, PER SIDE
     Route: 030
     Dates: start: 20130326, end: 20130326
  8. JUVEDERM ULTRA XC [Suspect]
     Active Substance: HYALURONIC ACID\LIDOCAINE HYDROCHLORIDE
     Indication: SKIN WRINKLING
     Dosage: UNK, SINGLE
     Dates: start: 20130115, end: 20130115
  9. BOTOX COSMETIC [Suspect]
     Active Substance: ONABOTULINUMTOXINA
     Dosage: 58 UNITS, SINGLE
     Route: 030
     Dates: start: 20131022, end: 20131022

REACTIONS (10)
  - Infection [Recovered/Resolved]
  - Peripheral vascular disorder [Recovered/Resolved]
  - Eye swelling [Recovered/Resolved]
  - Swelling face [Not Recovered/Not Resolved]
  - Eyelid oedema [Not Recovered/Not Resolved]
  - Skin warm [Recovered/Resolved]
  - Necrosis [Recovered/Resolved]
  - Erythema of eyelid [Recovered/Resolved]
  - Scab [Recovered/Resolved]
  - Erythema [Not Recovered/Not Resolved]
